FAERS Safety Report 9116758 (Version 1)
Quarter: 2013Q1

REPORT INFORMATION
  Report Type: Spontaneous
  Country: US (occurrence: US)
  Receive Date: 20130225
  Receipt Date: 20130225
  Transmission Date: 20140127
  Serious: No
  Sender: FDA-Public Use
  Company Number: US-ENDO PHARMACEUTICALS INC.-FORT20110025

PATIENT
  Age: 76 Year
  Sex: Male
  Weight: 68.1 kg

DRUGS (3)
  1. FORTESTA [Suspect]
     Indication: BLOOD TESTOSTERONE DECREASED
     Route: 061
     Dates: start: 20110503, end: 201105
  2. FORTESTA [Suspect]
     Dosage: 3 PUMPS
     Route: 061
     Dates: start: 201105
  3. FORTESTA [Suspect]
     Route: 061

REACTIONS (2)
  - Condition aggravated [Not Recovered/Not Resolved]
  - Drug ineffective [Unknown]
